FAERS Safety Report 5383283-3 (Version None)
Quarter: 2007Q3

REPORT INFORMATION
  Report Type: 
  Country: None (occurrence: None)
  Receive Date: 20070705
  Receipt Date: 20070621
  Transmission Date: 20080115
  Serious: Yes (Other)
  Sender: FDA-Public Use
  Company Number: 02100-JPN-07-0301

PATIENT
  Age: 68 Year
  Sex: Male

DRUGS (5)
  1. CILOSTAZOL [Suspect]
     Dosage: 200 MG ORAL
     Route: 048
     Dates: start: 20070502, end: 20070621
  2. FAMOTIDINE [Suspect]
     Dosage: 20 MG ORAL
     Route: 048
     Dates: start: 20070401, end: 20070621
  3. CARVEDILOL [Suspect]
     Dosage: 5 MG ORAL
     Route: 048
     Dates: start: 20070401, end: 20070621
  4. ASPIRIN [Concomitant]
  5. METOCLOPRAMIDE [Concomitant]

REACTIONS (2)
  - BLOOD BILIRUBIN INCREASED [None]
  - HEPATIC FUNCTION ABNORMAL [None]
